FAERS Safety Report 6221776-7 (Version None)
Quarter: 2009Q2

REPORT INFORMATION
  Report Type: 
  Country: None (occurrence: None)
  Receive Date: 20090608
  Receipt Date: 20080707
  Transmission Date: 20091009
  Serious: Yes (Hospitalization)
  Sender: FDA-Public Use
  Company Number: 1-16367162

PATIENT
  Age: 75 Year
  Sex: Female
  Weight: 54.4316 kg

DRUGS (7)
  1. METHYLPREDNISOLONE [Suspect]
     Indication: BACK PAIN
     Dosage: PER LABEL DIRECTIONS, ORAL
     Route: 048
     Dates: start: 20080616, end: 20080623
  2. METHYLPREDNISOLONE [Suspect]
     Indication: MUSCLE TIGHTNESS
     Dosage: PER LABEL DIRECTIONS, ORAL
     Route: 048
     Dates: start: 20080616, end: 20080623
  3. BACLOFEN [Concomitant]
  4. ASPIRIN [Concomitant]
  5. UNSPECIFIED ANALGESIC [Concomitant]
  6. UNSPECIFIED THYROID MEDICATION [Concomitant]
  7. MULTI-VITAMIN [Concomitant]

REACTIONS (7)
  - ABDOMINAL DISTENSION [None]
  - CONSTIPATION [None]
  - HYPOTONIA [None]
  - MUSCLE ATROPHY [None]
  - MUSCULAR WEAKNESS [None]
  - PAIN [None]
  - WEIGHT INCREASED [None]
